FAERS Safety Report 6663495-9 (Version None)
Quarter: 2010Q2

REPORT INFORMATION
  Report Type: 
  Country: None (occurrence: None)
  Receive Date: 20100401
  Receipt Date: 20100323
  Transmission Date: 20101027
  Serious: Yes (Hospitalization, Disabling, Other)
  Sender: FDA-Public Use
  Company Number: SE-PFIZER INC-2010018892

PATIENT
  Age: 67 Year
  Sex: Female
  Weight: 64 kg

DRUGS (9)
  1. VFEND [Suspect]
     Indication: ASPERGILLOSIS
     Dosage: 200 MG, 2X/DAY
     Route: 048
     Dates: start: 20081119, end: 20091109
  2. CORTISONE [Suspect]
     Dosage: UNK
  3. HEMOFER [Concomitant]
     Dosage: 1+0+2
     Dates: start: 20080303
  4. OMEPRAZOLE [Concomitant]
     Dosage: UNK
  5. NOVORAPID [Concomitant]
     Dosage: UNK
  6. BACTRIM DS [Concomitant]
     Dosage: 1 DF, MON, WED, FRI
     Dates: start: 20080101, end: 20100201
  7. BACTRIM [Concomitant]
     Dosage: 1 DF, MON, WED, FRI
     Dates: start: 20100201
  8. AMLODIPINE [Concomitant]
     Indication: BLOOD PRESSURE INCREASED
     Dosage: UNK
  9. RAMIPRIL [Concomitant]
     Indication: BLOOD PRESSURE INCREASED
     Dosage: UNK

REACTIONS (2)
  - PULMONARY FIBROSIS [None]
  - RENAL FAILURE [None]
